FAERS Safety Report 6509891-1 (Version None)
Quarter: 2009Q4

REPORT INFORMATION
  Report Type: 
  Country: None (occurrence: None)
  Receive Date: 20091222
  Receipt Date: 20091208
  Transmission Date: 20100525
  Serious: Yes (Hospitalization, Other)
  Sender: FDA-Public Use
  Company Number: PHHY2009NZ31407

PATIENT
  Sex: Female

DRUGS (5)
  1. CLOZARIL [Suspect]
     Indication: SCHIZOPHRENIA
     Dosage: 200 MG
     Dates: start: 20090704, end: 20090718
  2. CLOZARIL [Suspect]
     Dosage: 175 MG
  3. CLOZARIL [Suspect]
     Dosage: UNK
     Dates: start: 20090806
  4. TERAZOSIN HCL [Concomitant]
     Dosage: 1 MG NOCTE
  5. BENZOTROPINE [Concomitant]

REACTIONS (6)
  - INFECTION [None]
  - MYOCARDITIS [None]
  - PELVIC INFLAMMATORY DISEASE [None]
  - SEPSIS [None]
  - TACHYCARDIA [None]
  - TROPONIN INCREASED [None]
